FAERS Safety Report 21968323 (Version 1)
Quarter: 2023Q1

REPORT INFORMATION
  Report Type: Spontaneous
  Country: US (occurrence: None)
  Receive Date: 20230207
  Receipt Date: 20230207
  Transmission Date: 20230417
  Serious: No
  Sender: FDA-Public Use
  Company Number: None

PATIENT
  Age: 58 Year
  Sex: Female
  Weight: 67.5 kg

DRUGS (3)
  1. .DELTA.8-TETRAHYDROCANNABINOL\HERBALS [Suspect]
     Active Substance: .DELTA.8-TETRAHYDROCANNABINOL\HERBALS
     Indication: Sleep disorder
     Dosage: OTHER QUANTITY : 1 GUMMIES;?
     Route: 048
     Dates: start: 20230203, end: 20230203
  2. FISH OIL [Concomitant]
     Active Substance: FISH OIL
  3. St. Johns Wort immunity support [Concomitant]

REACTIONS (7)
  - Tremor [None]
  - Anxiety [None]
  - Seizure [None]
  - Hallucination [None]
  - Nausea [None]
  - Mental disorder [None]
  - Dissociation [None]

NARRATIVE: CASE EVENT DATE: 20230203
